FAERS Safety Report 12859604 (Version 1)
Quarter: 2016Q4

REPORT INFORMATION
  Report Type: Spontaneous
  Country: US (occurrence: US)
  Receive Date: 20161018
  Receipt Date: 20161018
  Transmission Date: 20170207
  Serious: No
  Sender: FDA-Public Use
  Company Number: US-TEIKOKU PHARMA USA-TPU2016-00677

PATIENT
  Sex: Female
  Weight: 65.83 kg

DRUGS (1)
  1. LIDODERM [Suspect]
     Active Substance: LIDOCAINE
     Indication: BACK PAIN
     Dosage: APPLY 1 PATCH WEEKLY ON BACK AND TOP RIGHT SHOULDER AREA
     Route: 061
     Dates: start: 2000

REACTIONS (3)
  - Product use issue [Recovering/Resolving]
  - Application site pain [Recovered/Resolved]
  - Pain [Not Recovered/Not Resolved]

NARRATIVE: CASE EVENT DATE: 2000
